FAERS Safety Report 9580334 (Version 3)
Quarter: 2014Q3

REPORT INFORMATION
  Report Type: Spontaneous
  Country: US (occurrence: US)
  Receive Date: 20131002
  Receipt Date: 20140819
  Transmission Date: 20150326
  Serious: Yes (Other)
  Sender: FDA-Public Use
  Company Number: US-BAYER-2013-118749

PATIENT
  Age: 30 Year
  Sex: Female

DRUGS (1)
  1. MIRENA [Suspect]
     Active Substance: LEVONORGESTREL
     Dosage: 20 MCG/24HR, CONT
     Route: 015
     Dates: start: 20100127, end: 20120904

REACTIONS (5)
  - Device dislocation [None]
  - Abdominal pain lower [None]
  - Medical device pain [None]
  - Injury [None]
  - Ovarian cyst [None]

NARRATIVE: CASE EVENT DATE: 20101026
